FAERS Safety Report 8407539-2 (Version None)
Quarter: 2012Q2

REPORT INFORMATION
  Report Type: 
  Country: None (occurrence: None)
  Receive Date: 20120604
  Receipt Date: 20120525
  Transmission Date: 20120825
  Serious: Yes (Other)
  Sender: FDA-Public Use
  Company Number: BE-UCBSA-058279

PATIENT
  Age: 19 Year
  Sex: Male

DRUGS (1)
  1. KEPPRA [Suspect]
     Indication: PARTIAL SEIZURES
     Dosage: DOWN TITRATION
     Dates: start: 20120401

REACTIONS (3)
  - SCREAMING [None]
  - INTENTIONAL SELF-INJURY [None]
  - AGGRESSION [None]
